FAERS Safety Report 9681503 (Version 1)
Quarter: 2013Q4

REPORT INFORMATION
  Report Type: Spontaneous
  Country: BR (occurrence: BR)
  Receive Date: 20131111
  Receipt Date: 20131111
  Transmission Date: 20140711
  Serious: Yes (Death, Other)
  Sender: FDA-Public Use
  Company Number: BR-PFIZER INC-2013317507

PATIENT
  Age: 76 Year
  Sex: Male

DRUGS (1)
  1. DETRUSITOL LA [Suspect]
     Dosage: UNSPECIFIED DOSE, 1X/DAY
     Dates: start: 20110808

REACTIONS (4)
  - Pancreatic carcinoma [Fatal]
  - Metastases to liver [Fatal]
  - Femur fracture [Unknown]
  - Fall [Unknown]
